FAERS Safety Report 26211665 (Version 1)
Quarter: 2025Q4

REPORT INFORMATION
  Report Type: Spontaneous
  Country: US (occurrence: US)
  Receive Date: 20251230
  Receipt Date: 20251230
  Transmission Date: 20260117
  Serious: No
  Sender: TOLMAR
  Company Number: US-Tolmar-TLM-2025-09620

PATIENT

DRUGS (2)
  1. ELIGARD [Suspect]
     Active Substance: LEUPROLIDE ACETATE
     Indication: Product used for unknown indication
     Dosage: BOX: 15363CUS EXP: 11-2026?NDC: 62935-227-10?SN#: 10362935227103 (INFORMATION IN BARCODE OF THE BOX)
  2. DEVICE [Suspect]
     Active Substance: DEVICE
     Indication: Product used for unknown indication
     Dosage: BOX: 15363CUS EXP: 11-2026?NDC: 62935-227-10?SN#: 10362935227103 (INFORMATION IN BARCODE OF THE BOX)

REACTIONS (3)
  - Intercepted product preparation error [Unknown]
  - Device leakage [Unknown]
  - Device occlusion [Unknown]
